FAERS Safety Report 8163302-1 (Version None)
Quarter: 2012Q1

REPORT INFORMATION
  Report Type: 
  Country: None (occurrence: None)
  Receive Date: 20120224
  Receipt Date: 20110810
  Transmission Date: 20120608
  Serious: No
  Sender: FDA-Public Use
  Company Number: US-PFIZER INC-K201100936

PATIENT
  Sex: Female
  Weight: 68.027 kg

DRUGS (4)
  1. IBUPROFEN [Concomitant]
     Dosage: UNK
  2. LORTAB [Concomitant]
     Indication: PAIN
     Dosage: UNK
     Route: 048
  3. FLECTOR [Suspect]
     Indication: PAIN
     Dosage: UNK PATCH, UNK
     Route: 061
     Dates: start: 20110809
  4. CELEXA [Concomitant]
     Indication: DEPRESSION
     Dosage: UNK

REACTIONS (1)
  - DYSGEUSIA [None]
